FAERS Safety Report 9349556 (Version 1)
Quarter: 2013Q2

REPORT INFORMATION
  Report Type: Spontaneous
  Country: FR (occurrence: FR)
  Receive Date: 20130614
  Receipt Date: 20130614
  Transmission Date: 20140414
  Serious: Yes (Congenital Anomaly)
  Sender: FDA-Public Use
  Company Number: FR-GLAXOSMITHKLINE-B0897854A

PATIENT
  Age: 1 Day
  Sex: Male

DRUGS (1)
  1. LAMICTAL [Suspect]
     Indication: EPILEPSY
     Dosage: 250MG PER DAY
     Route: 064
     Dates: start: 201102, end: 201205

REACTIONS (2)
  - Hypospadias [Recovered/Resolved with Sequelae]
  - Foetal exposure during pregnancy [Unknown]
